FAERS Safety Report 6983408-X (Version None)
Quarter: 2010Q3

REPORT INFORMATION
  Report Type: 
  Country: None (occurrence: None)
  Receive Date: 20100914
  Receipt Date: 20100914
  Transmission Date: 20110219
  Serious: Yes (Hospitalization, Disabling)
  Sender: FDA-Public Use
  Company Number: None

PATIENT
  Sex: Male
  Weight: 74.8435 kg

DRUGS (3)
  1. TRAZODONE HCL [Suspect]
     Indication: CIRCADIAN RHYTHM SLEEP DISORDER
     Dosage: 50MG PRN SLEEP PO
     Route: 048
     Dates: start: 20100902, end: 20100903
  2. DOXYCYCLINE [Concomitant]
  3. ^RIP FUEL^ SUPPLEMENTS [Concomitant]

REACTIONS (1)
  - PRIAPISM [None]
